FAERS Safety Report 13934515 (Version 1)
Quarter: 2017Q3

REPORT INFORMATION
  Report Type: Spontaneous
  Country: US (occurrence: US)
  Receive Date: 20170905
  Receipt Date: 20170905
  Transmission Date: 20171127
  Serious: No
  Sender: FDA-Public Use
  Company Number: US-TEVA-706278USA

PATIENT
  Sex: Female
  Weight: 40.86 kg

DRUGS (1)
  1. CARBIDOPA AND LEVODOPA [Suspect]
     Active Substance: CARBIDOPA\LEVODOPA
     Indication: PARKINSON^S DISEASE
     Dosage: 25/100MG
     Route: 065
     Dates: start: 20160826, end: 20160828

REACTIONS (8)
  - Dyskinesia [Unknown]
  - Eating disorder symptom [Unknown]
  - Dyspnoea [Unknown]
  - Product substitution issue [Unknown]
  - Discomfort [Unknown]
  - Pain [Unknown]
  - Chest discomfort [Unknown]
  - Restlessness [Unknown]
